FAERS Safety Report 9860414 (Version 1)
Quarter: 2014Q1

REPORT INFORMATION
  Report Type: Spontaneous
  Country: US (occurrence: US)
  Receive Date: 20140202
  Receipt Date: 20140202
  Transmission Date: 20141002
  Serious: Yes (Death)
  Sender: FDA-Public Use
  Company Number: CHPA2014US001553

PATIENT
  Age: 44 Year
  Sex: Female

DRUGS (6)
  1. DIPHENHYDRAMINE [Suspect]
     Route: 065
  2. FENTANYL [Suspect]
     Route: 062
  3. PHENOBARBITAL [Suspect]
     Route: 065
  4. PROMETHAZINE [Suspect]
     Route: 065
  5. AMITRIPTYLINE [Suspect]
     Route: 065
  6. VENLAFAXINE [Suspect]
     Route: 065

REACTIONS (1)
  - Death [Fatal]
